FAERS Safety Report 6397955-5 (Version None)
Quarter: 2009Q4

REPORT INFORMATION
  Report Type: 
  Country: None (occurrence: None)
  Receive Date: 20091013
  Receipt Date: 20091006
  Transmission Date: 20100525
  Serious: No
  Sender: FDA-Public Use
  Company Number: US-JNJFOC-20091002215

PATIENT
  Sex: Female

DRUGS (2)
  1. FENTANYL TRANSDERMAL SYSTEM [Suspect]
     Indication: ARTHRALGIA
     Dosage: 100 AND 25 UG/HR PATCH
     Route: 062
     Dates: start: 20090101
  2. UNKNOWN MULTIPLE MEDICATION [Concomitant]
     Indication: ARTHRALGIA
     Route: 065

REACTIONS (3)
  - APPLICATION SITE IRRITATION [None]
  - DEVICE LEAKAGE [None]
  - WRONG TECHNIQUE IN DRUG USAGE PROCESS [None]
